FAERS Safety Report 4858676-0 (Version None)
Quarter: 2005Q4

REPORT INFORMATION
  Report Type: 
  Country: None (occurrence: None)
  Receive Date: 20051215
  Receipt Date: 20051206
  Transmission Date: 20060501
  Serious: Yes (Death, Hospitalization)
  Sender: FDA-Public Use
  Company Number: 2005-04739

PATIENT
  Age: 6 Year
  Sex: Female

DRUGS (10)
  1. CHLORDIAZEPOXIDE/AMITRIPTYLINE HCL 5/12.5 (WATSON LABORATORIES) (AMITR [Suspect]
     Indication: EPIDERMOLYSIS BULLOSA
     Dosage: SEE IMAGE, ORAL
     Route: 048
  2. CHLORDIAZEPOXIDE/AMITRIPTYLINE HCL 5/12.5 (WATSON LABORATORIES) (AMITR [Suspect]
     Indication: PAIN
     Dosage: SEE IMAGE, ORAL
     Route: 048
  3. CISAPRIDE (CISAPRIDE) [Suspect]
     Indication: GASTROOESOPHAGEAL REFLUX DISEASE
     Dosage: 2.2 MG, BID, ORAL
     Route: 048
  4. PARACETAMOL (PARACETAMOL) [Concomitant]
  5. OPIAT (ATROPINE SULFATE, OPIUM ALKALOIDS TOTAL) [Concomitant]
  6. CARNITINE (CARNITINE) [Concomitant]
  7. FOLIC ACID [Concomitant]
  8. IRON (IRON) [Concomitant]
  9. SELENIUM (SELENIUM) [Concomitant]
  10. RANITIDINE [Concomitant]

REACTIONS (10)
  - ARRHYTHMIA [None]
  - CARDIOMYOPATHY [None]
  - DILATATION VENTRICULAR [None]
  - EPIDERMOLYSIS BULLOSA [None]
  - GASTROOESOPHAGEAL REFLUX DISEASE [None]
  - INADEQUATE ANALGESIA [None]
  - LEFT VENTRICULAR FAILURE [None]
  - MALNUTRITION [None]
  - OFF LABEL USE [None]
  - TACHYCARDIA [None]
